FAERS Safety Report 17444811 (Version 1)
Quarter: 2020Q1

REPORT INFORMATION
  Report Type: Spontaneous
  Country: US (occurrence: US)
  Receive Date: 20200221
  Receipt Date: 20200221
  Transmission Date: 20200409
  Serious: No
  Sender: FDA-Public Use
  Company Number: US-TEVA-2020-US-1188965

PATIENT
  Sex: Male

DRUGS (1)
  1. METHOTREXATE. [Suspect]
     Active Substance: METHOTREXATE
     Indication: INFLAMMATION
     Route: 065
     Dates: start: 201912, end: 20191203

REACTIONS (3)
  - Lip pain [Not Recovered/Not Resolved]
  - Oral pain [Not Recovered/Not Resolved]
  - Mouth swelling [Not Recovered/Not Resolved]
